FAERS Safety Report 16970657 (Version 3)
Quarter: 2019Q4

REPORT INFORMATION
  Report Type: Spontaneous
  Country: US (occurrence: US)
  Receive Date: 20191029
  Receipt Date: 20191217
  Transmission Date: 20200122
  Serious: Yes (Death, Life-Threatening, Hospitalization, Other)
  Sender: FDA-Public Use
  Company Number: US-ASTRAZENECA-2019SF50344

PATIENT
  Age: 63 Year
  Sex: Male
  Weight: 88 kg

DRUGS (3)
  1. GABAPENTIN. [Concomitant]
     Active Substance: GABAPENTIN
     Dosage: 100 THREE TIMES DAILY
     Dates: start: 20171217
  2. BRILINTA [Suspect]
     Active Substance: TICAGRELOR
     Indication: AIR EMBOLISM
     Route: 048
     Dates: start: 20171217
  3. ATORVASTATIN [Concomitant]
     Active Substance: ATORVASTATIN
     Dosage: 80.0MG UNKNOWN
     Dates: start: 20171216

REACTIONS (5)
  - Off label use [Unknown]
  - Cerebrovascular accident [Fatal]
  - Carotid artery occlusion [Fatal]
  - Platelet function test abnormal [Unknown]
  - Product use in unapproved indication [Unknown]

NARRATIVE: CASE EVENT DATE: 2017
